FAERS Safety Report 4509612-8 (Version None)
Quarter: 2004Q4

REPORT INFORMATION
  Report Type: 
  Country: None (occurrence: None)
  Receive Date: 20041124
  Receipt Date: 20040127
  Transmission Date: 20050328
  Serious: Yes (Death)
  Sender: FDA-Public Use
  Company Number: US-AMGEN-US065130

PATIENT
  Sex: Female

DRUGS (1)
  1. ENBREL [Suspect]
     Indication: PSORIASIS
     Route: 058

REACTIONS (2)
  - B-CELL LYMPHOMA [None]
  - INTESTINAL OBSTRUCTION [None]
